FAERS Safety Report 5092100-0 (Version None)
Quarter: 2006Q3

REPORT INFORMATION
  Report Type: 
  Country: None (occurrence: None)
  Receive Date: 20060829
  Receipt Date: 20060817
  Transmission Date: 20061208
  Serious: Yes (Death)
  Sender: FDA-Public Use
  Company Number: CA-BOEHRINGER INGELHEIM PHARMACEUTICALS, INC.-2006-DE-04318GD

PATIENT
  Age: 47 Year
  Sex: Female

DRUGS (8)
  1. NEVIRAPINE [Suspect]
     Indication: HIV INFECTION
  2. PARACETAMOL [Suspect]
  3. STAVUDINE [Suspect]
     Indication: HIV INFECTION
  4. DIDANOSINE [Suspect]
     Indication: HIV INFECTION
  5. ANTIBIOTICS [Suspect]
     Indication: PNEUMONIA
  6. BENZTROPINE MESYLATE [Suspect]
  7. LOXAPINE [Suspect]
  8. NSAID [Suspect]

REACTIONS (11)
  - ANOREXIA [None]
  - ASTHENIA [None]
  - DYSPNOEA [None]
  - HEPATIC FAILURE [None]
  - HEPATIC STEATOSIS [None]
  - LACTIC ACIDOSIS [None]
  - OBSTRUCTIVE AIRWAYS DISORDER [None]
  - PNEUMONIA [None]
  - PYREXIA [None]
  - SHOCK [None]
  - VOMITING [None]
